FAERS Safety Report 14311614 (Version 1)
Quarter: 2017Q4

REPORT INFORMATION
  Report Type: Spontaneous
  Country: JP (occurrence: JP)
  Receive Date: 20171221
  Receipt Date: 20171221
  Transmission Date: 20180321
  Serious: Yes (Other)
  Sender: FDA-Public Use
  Company Number: JP-SUN PHARMACEUTICAL INDUSTRIES LTD-2017R3-157268

PATIENT
  Age: 77 Year
  Sex: Male

DRUGS (3)
  1. TEGRETOL [Suspect]
     Active Substance: CARBAMAZEPINE
     Indication: TRIGEMINAL NEURALGIA
     Dosage: 600 MG, DAILY
     Route: 048
  2. LIORESAL [Suspect]
     Active Substance: BACLOFEN
     Indication: TRIGEMINAL NEURALGIA
     Dosage: 30 MG, DAILY
     Route: 048
  3. TRAMADOL/ACETAMINOPHEN [Suspect]
     Active Substance: ACETAMINOPHEN\TRAMADOL
     Indication: TRIGEMINAL NEURALGIA
     Dosage: 1450 MG, DAILY
     Route: 048

REACTIONS (12)
  - Nausea [Unknown]
  - Constipation [Unknown]
  - Sleep disorder [Unknown]
  - Peripheral coldness [Unknown]
  - Somnolence [Unknown]
  - Condition aggravated [Recovered/Resolved]
  - Depression [Unknown]
  - Decreased appetite [Unknown]
  - Thirst [Unknown]
  - Dizziness [Unknown]
  - Abulia [Unknown]
  - Dry skin [Unknown]
